FAERS Safety Report 7405898-0 (Version None)
Quarter: 2011Q2

REPORT INFORMATION
  Report Type: 
  Country: None (occurrence: None)
  Receive Date: 20110411
  Receipt Date: 20110401
  Transmission Date: 20111010
  Serious: Yes (Other)
  Sender: FDA-Public Use
  Company Number: FR-PFIZER INC-FR-WYE-G04719009

PATIENT
  Age: 32 Year
  Sex: Female
  Weight: 64 kg

DRUGS (3)
  1. EFFEXOR XR [Suspect]
     Indication: SOCIAL PHOBIA
     Dosage: 150 MG TOTAL DAILY
     Route: 048
     Dates: start: 20091001
  2. XANAX [Suspect]
     Dosage: UNK
     Route: 048
     Dates: start: 20091001, end: 20091109
  3. EFFEXOR XR [Suspect]
     Indication: DEPRESSION
     Dosage: 187.5 MG TOTAL DAILY
     Route: 048
     Dates: start: 20070704, end: 20091001

REACTIONS (3)
  - ABORTION SPONTANEOUS [None]
  - DRUG WITHDRAWAL SYNDROME [None]
  - ANXIETY [None]
